FAERS Safety Report 7721185-5 (Version None)
Quarter: 2011Q3

REPORT INFORMATION
  Report Type: 
  Country: None (occurrence: None)
  Receive Date: 20110831
  Receipt Date: 20110823
  Transmission Date: 20111222
  Serious: Yes (Death, Hospitalization)
  Sender: FDA-Public Use
  Company Number: JP-BAYER-2011-035022

PATIENT
  Age: 77 Year
  Sex: Female
  Weight: 46 kg

DRUGS (7)
  1. NEXAVAR [Suspect]
     Indication: HEPATIC NEOPLASM MALIGNANT
     Dosage: 400 MG, QD
     Route: 048
     Dates: start: 20110415, end: 20110422
  2. TENORMIN [Concomitant]
     Indication: HYPERTENSION
     Dosage: 50 MG, QD
     Route: 048
  3. NEXAVAR [Suspect]
     Dosage: 200 MG, QOD
     Dates: start: 20110509, end: 20110531
  4. NORVASC [Concomitant]
     Indication: HYPERTENSION
     Dosage: 2.5 MG, QD
     Route: 048
  5. URSO 250 [Concomitant]
     Indication: HEPATIC CIRRHOSIS
     Dosage: 600 MG, QD
     Route: 048
  6. NEXAVAR [Suspect]
     Dosage: 200 MG, QD
     Route: 048
     Dates: start: 20110502, end: 20110508
  7. LIVACT [ISOLEUCINE,LEUCINE,VALINE] [Concomitant]
     Indication: HEPATIC CIRRHOSIS
     Dosage: 2 DF, QD
     Route: 048

REACTIONS (2)
  - HEPATIC FAILURE [None]
  - PANCREATITIS ACUTE [None]
